FAERS Safety Report 8012034-9 (Version None)
Quarter: 2011Q4

REPORT INFORMATION
  Report Type: 
  Country: None (occurrence: None)
  Receive Date: 20111228
  Receipt Date: 20111220
  Transmission Date: 20120403
  Serious: Yes (Other)
  Sender: FDA-Public Use
  Company Number: JP-GLAXOSMITHKLINE-B0770891A

PATIENT
  Age: 73 Year
  Sex: Male

DRUGS (6)
  1. ASPIRIN [Concomitant]
     Route: 048
  2. OMEPRAZOLE [Concomitant]
     Route: 065
  3. TANATRIL [Concomitant]
     Route: 048
  4. TICLOPIDINE HCL [Concomitant]
     Route: 048
  5. DUTASTERIDE [Suspect]
     Indication: BENIGN PROSTATIC HYPERPLASIA
     Dosage: .5MG PER DAY
     Route: 048
     Dates: start: 20111217, end: 20111219
  6. NIFELAT L [Concomitant]
     Route: 048

REACTIONS (1)
  - BLOOD PRESSURE INCREASED [None]
